FAERS Safety Report 20973957 (Version 1)
Quarter: 2022Q2

REPORT INFORMATION
  Report Type: Report from Study
  Country: MX (occurrence: MX)
  Receive Date: 20220617
  Receipt Date: 20220617
  Transmission Date: 20220721
  Serious: Yes (Death)
  Sender: FDA-Public Use
  Company Number: MX-NOVARTISPH-NVSC2022MX139367

PATIENT
  Sex: Male
  Weight: 70 kg

DRUGS (2)
  1. GLYCOPYRRONIUM\INDACATEROL [Suspect]
     Active Substance: GLYCOPYRRONIUM\INDACATEROL
     Indication: Chronic obstructive pulmonary disease
     Dosage: 1 DOSAGE FORM (110/50MG), QD
     Route: 055
     Dates: start: 2022
  2. BICALUTAMIDE [Concomitant]
     Active Substance: BICALUTAMIDE
     Indication: Prostatitis
     Dosage: UNK
     Route: 065

REACTIONS (1)
  - Intestinal obstruction [Fatal]
